FAERS Safety Report 4338948-9 (Version None)
Quarter: 2004Q2

REPORT INFORMATION
  Report Type: 
  Country: None (occurrence: None)
  Receive Date: 20040409
  Receipt Date: 20040324
  Transmission Date: 20050107
  Serious: Yes (Death)
  Sender: FDA-Public Use
  Company Number: A03200400922

PATIENT
  Age: 73 Year
  Sex: Female

DRUGS (2)
  1. ARIXTRA [Suspect]
     Indication: KNEE ARTHROPLASTY
     Dosage: 2.5 MG QD - SUBCUTANEOUS
     Route: 058
     Dates: start: 20040101
  2. ARIXTRA [Suspect]
     Indication: THROMBOSIS PROPHYLAXIS
     Dosage: 2.5 MG QD - SUBCUTANEOUS
     Route: 058
     Dates: start: 20040101

REACTIONS (1)
  - DEATH [None]
